FAERS Safety Report 8222657-X (Version None)
Quarter: 2012Q1

REPORT INFORMATION
  Report Type: 
  Country: None (occurrence: None)
  Receive Date: 20120315
  Receipt Date: 20120302
  Transmission Date: 20120608
  Serious: Yes (Death, Life-Threatening)
  Sender: FDA-Public Use
  Company Number: 2012SP007736

PATIENT
  Age: 75 Year
  Sex: Male

DRUGS (5)
  1. IRBESARTAN [Concomitant]
  2. CLARITIN [Suspect]
     Indication: PRURITUS
     Dosage: 10 MG;QD;PO
     Route: 048
     Dates: start: 20111006, end: 20111116
  3. LOCHOL /01224502/) [Concomitant]
  4. JANUVIA (SITAGLIPTIN PHOSPHATE HYDRATE) [Concomitant]
  5. CORINAEL CR (NIFEDIPINE) [Concomitant]

REACTIONS (11)
  - CONDITION AGGRAVATED [None]
  - RESPIRATORY FAILURE [None]
  - CORONARY ARTERY OCCLUSION [None]
  - DIFFUSE ALVEOLAR DAMAGE [None]
  - DISSEMINATED INTRAVASCULAR COAGULATION [None]
  - INTERSTITIAL LUNG DISEASE [None]
  - THROMBOCYTOPENIA [None]
  - BACTERIAL INFECTION [None]
  - DIZZINESS [None]
  - APPARENT LIFE THREATENING EVENT [None]
  - DECREASED APPETITE [None]
